FAERS Safety Report 22022883 (Version 3)
Quarter: 2023Q1

REPORT INFORMATION
  Report Type: Spontaneous
  Country: CN (occurrence: CN)
  Receive Date: 20230222
  Receipt Date: 20230316
  Transmission Date: 20230418
  Serious: Yes (Other)
  Sender: FDA-Public Use
  Company Number: CN-GILEAD-2023-0617415

PATIENT
  Age: 60 Year
  Sex: Male

DRUGS (11)
  1. BIKTARVY [Suspect]
     Active Substance: BICTEGRAVIR SODIUM\EMTRICITABINE\TENOFOVIR ALAFENAMIDE FUMARATE
     Indication: HIV infection
     Dosage: 1 DOSAGE FORM, QD
     Route: 048
     Dates: start: 20221121
  2. MIRTAZAPINE [Concomitant]
     Active Substance: MIRTAZAPINE
  3. VITAMIN D NOS [Concomitant]
     Active Substance: VITAMIN D NOS
  4. VITAMIN C [Concomitant]
     Active Substance: ASCORBIC ACID
  5. CYANOCOBALAMIN [Concomitant]
     Active Substance: CYANOCOBALAMIN
  6. MENAQUINONE 6 [Concomitant]
     Active Substance: MENAQUINONE 6
  7. PROBIOTICS BOWEL SUPPORT [Concomitant]
  8. DIETARY SUPPLEMENT\RESVERATROL [Concomitant]
     Active Substance: DIETARY SUPPLEMENT\RESVERATROL
  9. DEEP SEA FISH OIL [Concomitant]
  10. DIETARY SUPPLEMENT\UBIDECARENONE [Concomitant]
     Active Substance: DIETARY SUPPLEMENT\UBIDECARENONE
  11. CURCUMIN [Concomitant]
     Active Substance: CURCUMIN

REACTIONS (7)
  - Immunodeficiency [Recovering/Resolving]
  - Product counterfeit [Unknown]
  - Lymph node pain [Recovering/Resolving]
  - Hypersensitivity [Recovering/Resolving]
  - Insomnia [Recovering/Resolving]
  - Viral load increased [Recovered/Resolved]
  - CD4 lymphocytes decreased [Unknown]

NARRATIVE: CASE EVENT DATE: 20230101
